FAERS Safety Report 19033492 (Version 2)
Quarter: 2021Q2

REPORT INFORMATION
  Report Type: Spontaneous
  Country: JP (occurrence: JP)
  Receive Date: 20210320
  Receipt Date: 20210416
  Transmission Date: 20210717
  Serious: Yes (Death, Hospitalization, Other)
  Sender: FDA-Public Use
  Company Number: JP-SA-2021SA094815

PATIENT
  Age: 73 Year
  Sex: Male
  Weight: 69 kg

DRUGS (17)
  1. LINAGLIPTIN [Concomitant]
     Active Substance: LINAGLIPTIN
     Route: 048
  2. BICALUTAMIDE. [Concomitant]
     Active Substance: BICALUTAMIDE
  3. CARBOPLATIN. [Concomitant]
     Active Substance: CARBOPLATIN
  4. ETIZOLAM [Concomitant]
     Active Substance: ETIZOLAM
     Route: 048
  5. LANSOPRAZOLE. [Concomitant]
     Active Substance: LANSOPRAZOLE
     Route: 048
  6. SPIRONOLACTONE. [Concomitant]
     Active Substance: SPIRONOLACTONE
     Route: 048
  7. BROTIZOLAM [Concomitant]
     Active Substance: BROTIZOLAM
     Route: 048
  8. GLICLAZIDE [Concomitant]
     Active Substance: GLICLAZIDE
     Route: 048
  9. DEXAMETHASONE. [Concomitant]
     Active Substance: DEXAMETHASONE
  10. FLUVOXAMINE MALEATE. [Concomitant]
     Active Substance: FLUVOXAMINE MALEATE
     Route: 048
  11. METYRAPONE [Concomitant]
     Active Substance: METYRAPONE
  12. ETOPOSIDE. [Concomitant]
     Active Substance: ETOPOSIDE
  13. HARNAL [Suspect]
     Active Substance: TAMSULOSIN HYDROCHLORIDE
     Indication: PRODUCT USED FOR UNKNOWN INDICATION
     Dosage: UNK
     Route: 048
  14. KALIUM L?ASPARTATE [Concomitant]
     Route: 048
  15. SULPIRIDE [Concomitant]
     Active Substance: SULPIRIDE
     Route: 048
  16. SUVOREXANT. [Concomitant]
     Active Substance: SUVOREXANT
     Route: 048
  17. AMRUBICIN [Concomitant]
     Active Substance: AMRUBICIN

REACTIONS (11)
  - Hypokalaemia [Unknown]
  - Neoplasm [Unknown]
  - Metastases to liver [Unknown]
  - Metastases to central nervous system [Unknown]
  - Prostatic mass [Unknown]
  - Hyperglycaemia [Unknown]
  - Death [Fatal]
  - Metastases to bone [Unknown]
  - Prostate cancer [Unknown]
  - Ectopic ACTH syndrome [Unknown]
  - Depressive symptom [Unknown]
